FAERS Safety Report 25053040 (Version 1)
Quarter: 2025Q1

REPORT INFORMATION
  Report Type: Spontaneous
  Country: US (occurrence: US)
  Receive Date: 20250307
  Receipt Date: 20250307
  Transmission Date: 20250408
  Serious: Yes (Hospitalization)
  Sender: SANOFI AVENTIS
  Company Number: US-SA-2025SA060161

PATIENT
  Age: 50 Year
  Sex: Male

DRUGS (19)
  1. REZUROCK [Suspect]
     Active Substance: BELUMOSUDIL
     Indication: Chronic graft versus host disease
     Dosage: 200 MG, QD
     Route: 048
     Dates: start: 202310
  2. OMEPRAZOLE [Concomitant]
     Active Substance: OMEPRAZOLE
  3. JAKAFI [Concomitant]
     Active Substance: RUXOLITINIB
  4. ATOVAQUONE [Concomitant]
     Active Substance: ATOVAQUONE
  5. BUDESONIDE [Concomitant]
     Active Substance: BUDESONIDE
  6. CYCLOBENZAPRINE [Concomitant]
     Active Substance: CYCLOBENZAPRINE
  7. DULOXETINE [Concomitant]
     Active Substance: DULOXETINE
  8. ACYCLOVIR [Concomitant]
     Active Substance: ACYCLOVIR
  9. ELIQUIS [Concomitant]
     Active Substance: APIXABAN
  10. GABAPENTIN [Concomitant]
     Active Substance: GABAPENTIN
  11. CANNABIS SATIVA SUBSP. INDICA TOP [Concomitant]
     Active Substance: CANNABIS SATIVA SUBSP. INDICA TOP
  12. MORPHINE [Concomitant]
     Active Substance: MORPHINE
  13. NALOXONE [Concomitant]
     Active Substance: NALOXONE
  14. OXYCODONE [Concomitant]
     Active Substance: OXYCODONE
  15. PREDNISONE [Concomitant]
     Active Substance: PREDNISONE
  16. PRILOSEC [Concomitant]
     Active Substance: OMEPRAZOLE MAGNESIUM
  17. TACROLIMUS [Concomitant]
     Active Substance: TACROLIMUS
  18. VORICONAZOLE [Concomitant]
     Active Substance: VORICONAZOLE
  19. ZOFRAN [Concomitant]
     Active Substance: ONDANSETRON HYDROCHLORIDE

REACTIONS (2)
  - Hospitalisation [Unknown]
  - Inappropriate schedule of product administration [Unknown]

NARRATIVE: CASE EVENT DATE: 20231001
